FAERS Safety Report 4968801-9 (Version None)
Quarter: 2006Q2

REPORT INFORMATION
  Report Type: 
  Country: None (occurrence: None)
  Receive Date: 20060411
  Receipt Date: 20060125
  Transmission Date: 20061013
  Serious: Yes (Life-Threatening, Hospitalization)
  Sender: FDA-Public Use
  Company Number: ES-GLAXOSMITHKLINE-B0408148A

PATIENT
  Age: 58 Year
  Sex: Male

DRUGS (1)
  1. ABACAVIR [Suspect]
     Indication: HIV INFECTION
     Route: 065

REACTIONS (21)
  - BLISTER [None]
  - BLOOD CREATINE PHOSPHOKINASE INCREASED [None]
  - BLOOD CREATININE INCREASED [None]
  - COAGULOPATHY [None]
  - DERMATITIS EXFOLIATIVE [None]
  - DIARRHOEA [None]
  - DRUG HYPERSENSITIVITY [None]
  - EXTREMITY NECROSIS [None]
  - HEPATIC FAILURE [None]
  - HYPOTENSION [None]
  - MALAISE [None]
  - MULTI-ORGAN FAILURE [None]
  - PLATELET COUNT DECREASED [None]
  - PYREXIA [None]
  - RASH [None]
  - RENAL FAILURE [None]
  - RESPIRATORY FAILURE [None]
  - RHABDOMYOLYSIS [None]
  - SKIN LESION [None]
  - TACHYCARDIA [None]
  - VOMITING [None]
